FAERS Safety Report 23709818 (Version 5)
Quarter: 2024Q2

REPORT INFORMATION
  Report Type: Report from Study
  Country: CA (occurrence: CA)
  Receive Date: 20240405
  Receipt Date: 20240620
  Transmission Date: 20240715
  Serious: Yes (Other)
  Sender: FDA-Public Use
  Company Number: CA-JNJFOC-20240318976

PATIENT
  Age: 73 Year
  Sex: Female
  Weight: 74 kg

DRUGS (1)
  1. REMICADE [Suspect]
     Active Substance: INFLIXIMAB
     Indication: Crohn^s disease
     Route: 041

REACTIONS (8)
  - Abdominal pain [Recovered/Resolved]
  - Vomiting [Unknown]
  - Inguinal hernia [Not Recovered/Not Resolved]
  - Malaise [Recovering/Resolving]
  - Influenza like illness [Recovering/Resolving]
  - Frequent bowel movements [Unknown]
  - Constipation [Recovering/Resolving]
  - Incorrect drug administration rate [Unknown]

NARRATIVE: CASE EVENT DATE: 20240125
